FAERS Safety Report 8560692-2 (Version None)
Quarter: 2012Q2

REPORT INFORMATION
  Report Type: 
  Country: None (occurrence: None)
  Receive Date: 20120418
  Receipt Date: 20090430
  Transmission Date: 20120825
  Serious: Yes (Disabling, Other)
  Sender: FDA-Public Use
  Company Number: PHEH2009US04094

PATIENT
  Age: 90 Year
  Sex: Male
  Weight: 68 kg

DRUGS (4)
  1. ENABLEX [Suspect]
     Indication: HYPERTONIC BLADDER
     Dosage: 7.5 MG, QD, ORAL
     Route: 048
     Dates: start: 20090327, end: 20090408
  2. LUPRON [Concomitant]
  3. PROSED EC (ATROPINE SULFATE, BENZOIC ACID, HYOSCYAMINE SULFATE, METHEN [Concomitant]
  4. FLOMAX [Concomitant]

REACTIONS (1)
  - HALLUCINATION [None]
